FAERS Safety Report 8372547-7 (Version None)
Quarter: 2012Q2

REPORT INFORMATION
  Report Type: 
  Country: None (occurrence: None)
  Receive Date: 20120521
  Receipt Date: 20120514
  Transmission Date: 20120825
  Serious: Yes (Other)
  Sender: FDA-Public Use
  Company Number: PHMT2007CA00707

PATIENT
  Sex: Female

DRUGS (1)
  1. CLOZARIL [Suspect]
     Indication: PARKINSON'S DISEASE
     Route: 048
     Dates: start: 20000403

REACTIONS (2)
  - LUNG CARCINOMA CELL TYPE UNSPECIFIED RECURRENT [None]
  - LUNG NEOPLASM MALIGNANT [None]
